FAERS Safety Report 24595791 (Version 2)
Quarter: 2024Q4

REPORT INFORMATION
  Report Type: Report from Study
  Country: NL (occurrence: NL)
  Receive Date: 20241109
  Receipt Date: 20241119
  Transmission Date: 20250114
  Serious: Yes (Hospitalization)
  Sender: ABBVIE
  Company Number: NL-ABBVIE-5993538

PATIENT
  Sex: Male

DRUGS (15)
  1. CARBIDOPA\LEVODOPA [Suspect]
     Active Substance: CARBIDOPA\LEVODOPA
     Indication: Parkinson^s disease
     Dosage: LD:0.90ML, BIR:0.29ML/H, HIR:0.29ML/H, LIR:0.22ML/H, ED:0.25ML, REMAINS AT 24 HOURS
     Route: 058
     Dates: start: 20240612, end: 20240612
  2. CARBIDOPA\LEVODOPA [Suspect]
     Active Substance: CARBIDOPA\LEVODOPA
     Dosage: LD:0.90ML, BIR:0.33ML/H, HIR:0.35ML/H, LIR:0.15ML/H, ED:0.30ML, REMAINS AT 16 HOURS
     Route: 058
     Dates: start: 20240710, end: 20240801
  3. CARBIDOPA\LEVODOPA [Suspect]
     Active Substance: CARBIDOPA\LEVODOPA
     Dosage: LD:0.90ML, BIR:0.27ML/H, HIR:0.27ML/H, LIR:0.20ML/H, ED:0.15ML, REMAINS AT 24 HOURS
     Route: 058
     Dates: start: 20240523, end: 20240530
  4. CARBIDOPA\LEVODOPA [Suspect]
     Active Substance: CARBIDOPA\LEVODOPA
     Dosage: LD:0.90ML, BIR:0.34ML/H, HIR:0.35ML/H, LIR:0.15ML/H, ED:0.30ML, GOES TO 16 HOURS
     Route: 058
     Dates: start: 20240626, end: 20240710
  5. CARBIDOPA\LEVODOPA [Suspect]
     Active Substance: CARBIDOPA\LEVODOPA
     Dosage: LD:0.90ML, BIR:0.31ML/H, HIR:0.31ML/H, LIR:0.22ML/H, ED:0.25ML, REMAINS AT 24 HOURS
     Route: 058
     Dates: start: 20240612, end: 20240626
  6. CARBIDOPA\LEVODOPA [Suspect]
     Active Substance: CARBIDOPA\LEVODOPA
     Dosage: LD:0.90ML, BIR:0.29ML/H, HIR:0.29ML/H, LIR:0.22ML/H, ED:0.20ML, REMAINS AT 24 HOURS
     Route: 058
     Dates: start: 20240603, end: 20240612
  7. CARBIDOPA\LEVODOPA [Suspect]
     Active Substance: CARBIDOPA\LEVODOPA
     Dosage: LD:0.90ML, BIR:0.27ML/H, HIR:0.27ML/H, LIR:0.17ML/H, ED:0.10ML, REMAINS AT 24 HOURS
     Route: 058
     Dates: start: 20240516, end: 20240523
  8. CARBIDOPA\LEVODOPA [Suspect]
     Active Substance: CARBIDOPA\LEVODOPA
     Dosage: LD:0.90ML, BIR:0.33ML/H, HIR:0.35ML/H, LIR:0.15ML/H, ED:0.30ML, REMAINS AT 16 HOURS
     Route: 058
     Dates: start: 20240801
  9. CARBIDOPA\LEVODOPA [Suspect]
     Active Substance: CARBIDOPA\LEVODOPA
     Dosage: LD:0.90ML, BIR:0.29ML/H, HIR:0.29ML/H, LIR:0.20ML/H, ED:0.20ML, REMAINS AT 24 HOURS
     Route: 058
     Dates: start: 20240530, end: 20240603
  10. CARBIDOPA\LEVODOPA [Suspect]
     Active Substance: CARBIDOPA\LEVODOPA
     Dosage: LD:0.90ML, BIR:0.25ML/H, HIR:0.25ML/H, LIR:0.15ML/H, ED:0.10ML, REMAINS AT 24 HOURS
     Route: 058
     Dates: start: 20240513, end: 20240516
  11. SINEMET [Concomitant]
     Active Substance: CARBIDOPA\LEVODOPA
     Indication: Parkinson^s disease
     Dates: end: 20240513
  12. Madopar Hydrodynamically Balanced System [Concomitant]
     Indication: Parkinson^s disease
     Dates: end: 20240513
  13. CARBIDOPA\LEVODOPA [Concomitant]
     Active Substance: CARBIDOPA\LEVODOPA
     Indication: Parkinson^s disease
     Dates: end: 20240513
  14. ENTACAPONE [Concomitant]
     Active Substance: ENTACAPONE
     Indication: Parkinson^s disease
     Dates: end: 20240513
  15. RIVASTIGMINE [Concomitant]
     Active Substance: RIVASTIGMINE
     Indication: Product used for unknown indication
     Dates: start: 20240606

REACTIONS (2)
  - Coronavirus infection [Not Recovered/Not Resolved]
  - Rehabilitation therapy [Not Recovered/Not Resolved]

NARRATIVE: CASE EVENT DATE: 20240101
